FAERS Safety Report 9943840 (Version 1)
Quarter: 2014Q1

REPORT INFORMATION
  Report Type: Spontaneous
  Country: US (occurrence: US)
  Receive Date: 20140303
  Receipt Date: 20140303
  Transmission Date: 20141002
  Serious: No
  Sender: FDA-Public Use
  Company Number: US-GILEAD-2014-0095388

PATIENT
  Sex: Male

DRUGS (1)
  1. SOVALDI [Suspect]
     Indication: HEPATITIS C
     Dosage: UNK
     Route: 065

REACTIONS (10)
  - Nausea [Unknown]
  - Fatigue [Unknown]
  - Local swelling [Unknown]
  - Psoriasis [Unknown]
  - Dry skin [Unknown]
  - Increased upper airway secretion [Unknown]
  - Salivary hypersecretion [Unknown]
  - Pruritus [Unknown]
  - Abdominal pain upper [Unknown]
  - Sleep disorder [Unknown]
